FAERS Safety Report 18252824 (Version 1)
Quarter: 2020Q3

REPORT INFORMATION
  Report Type: Spontaneous
  Country: US (occurrence: US)
  Receive Date: 20200910
  Receipt Date: 20200910
  Transmission Date: 20201103
  Serious: No
  Sender: FDA-Public Use
  Company Number: None

PATIENT
  Age: 59 Year
  Sex: Female
  Weight: 81.8 kg

DRUGS (8)
  1. REMDESIVIR. [Suspect]
     Active Substance: REMDESIVIR
     Indication: COVID-19
     Route: 042
     Dates: start: 20200829, end: 20200902
  2. PRENATAL VITAMIN [Concomitant]
     Active Substance: VITAMINS
     Dates: start: 20200827, end: 20200906
  3. CHOLECALCIFEROL [Concomitant]
     Active Substance: CHOLECALCIFEROL
     Dates: start: 20200826
  4. PANTOPRAZOLE 40MG [Concomitant]
     Active Substance: PANTOPRAZOLE SODIUM
     Dates: start: 20200825
  5. DEXAMETHASONE 10MG [Concomitant]
     Dates: start: 20200826, end: 20200905
  6. ASPIRIN 81MG [Concomitant]
     Active Substance: ASPIRIN
     Dates: start: 20200825
  7. ENOXAPARIN 40MG [Concomitant]
     Active Substance: ENOXAPARIN
     Dates: start: 20200830, end: 20200906
  8. CEFTRIAXONE 1GM [Concomitant]
     Dates: start: 20200825, end: 20200904

REACTIONS (3)
  - Therapy interrupted [None]
  - Alanine aminotransferase increased [None]
  - Aspartate aminotransferase increased [None]

NARRATIVE: CASE EVENT DATE: 20200903
